FAERS Safety Report 6986003-1 (Version None)
Quarter: 2010Q3

REPORT INFORMATION
  Report Type: 
  Country: None (occurrence: None)
  Receive Date: 20100915
  Receipt Date: 20100903
  Transmission Date: 20110219
  Serious: Yes (Hospitalization)
  Sender: FDA-Public Use
  Company Number: US-GILEAD-2010-0031662

PATIENT
  Sex: Female
  Weight: 48.9 kg

DRUGS (22)
  1. AZTREONAM [Suspect]
     Indication: CYSTIC FIBROSIS
     Route: 055
     Dates: start: 20100329
  2. AZITHROMYCIN [Concomitant]
     Indication: CYSTIC FIBROSIS LUNG
  3. PULMOZYME [Concomitant]
     Indication: CYSTIC FIBROSIS LUNG
  4. SINGULAIR [Concomitant]
     Indication: RHINITIS ALLERGIC
  5. SYMBICORT [Concomitant]
     Indication: ASTHMA
  6. XOPENEX [Concomitant]
     Indication: CYSTIC FIBROSIS LUNG
  7. ALBUTEROL [Concomitant]
     Indication: CYSTIC FIBROSIS LUNG
     Dates: start: 20100329
  8. ACTIGALL [Concomitant]
     Indication: CYSTIC FIBROSIS HEPATIC DISEASE
  9. ADEK [Concomitant]
     Indication: PANCREATIC INSUFFICIENCY
  10. CALTRATE [Concomitant]
     Indication: OSTEOPENIA
  11. VITAMIN D [Concomitant]
     Indication: OSTEOPENIA
  12. FIORICET [Concomitant]
     Indication: MIGRAINE
  13. LORATADINE [Concomitant]
     Indication: RHINITIS ALLERGIC
  14. MIRALAX [Concomitant]
     Indication: CONSTIPATION
  15. PANCREASE MT 20 [Concomitant]
     Indication: PANCREATIC INSUFFICIENCY
  16. PROTONIX [Concomitant]
     Indication: GASTROOESOPHAGEAL REFLUX DISEASE
  17. REGLAN [Concomitant]
     Indication: GASTROOESOPHAGEAL REFLUX DISEASE
  18. SENOKOT [Concomitant]
     Indication: CONSTIPATION
  19. XOLAIR [Concomitant]
     Indication: HYPERSENSITIVITY
  20. PREDNISONE [Concomitant]
     Indication: CYSTIC FIBROSIS LUNG
     Dates: start: 20100730
  21. ITRACONAZOLE [Concomitant]
     Indication: CYSTIC FIBROSIS LUNG
     Dates: start: 20100803
  22. LANTUS [Concomitant]
     Indication: CYSTIC FIBROSIS RELATED DIABETES

REACTIONS (1)
  - HAEMOPTYSIS [None]
